FAERS Safety Report 5165287-9 (Version None)
Quarter: 2006Q4

REPORT INFORMATION
  Report Type: 
  Country: None (occurrence: None)
  Receive Date: 20061124
  Receipt Date: 20061114
  Transmission Date: 20070319
  Serious: Yes (Other)
  Sender: FDA-Public Use
  Company Number: 2006142332

PATIENT
  Sex: 0

DRUGS (1)
  1. FRAGMIN [Suspect]
     Dosage: 5000 I.U.
     Dates: start: 20060101

REACTIONS (3)
  - PHARMACEUTICAL PRODUCT COMPLAINT [None]
  - PHLEBITIS [None]
  - PULMONARY EMBOLISM [None]
